FAERS Safety Report 8396177-6 (Version None)
Quarter: 2012Q2

REPORT INFORMATION
  Report Type: 
  Country: None (occurrence: None)
  Receive Date: 20120530
  Receipt Date: 20110725
  Transmission Date: 20120825
  Serious: Yes (Hospitalization)
  Sender: FDA-Public Use
  Company Number: JP-GLAXOSMITHKLINE-B0735805A

PATIENT
  Sex: Female

DRUGS (7)
  1. TOLEDOMIN [Concomitant]
     Dosage: 75MG PER DAY
     Route: 048
     Dates: start: 20050617
  2. LAMICTAL [Suspect]
     Indication: BIPOLAR II DISORDER
     Dosage: 12.5MG PER DAY
     Route: 048
     Dates: start: 20110615, end: 20110623
  3. LAMICTAL [Suspect]
     Dosage: 25MG PER DAY
     Route: 048
     Dates: start: 20110624, end: 20110701
  4. FLUVOXAMINE MALEATE [Concomitant]
     Indication: ANXIETY
     Dosage: 75MG PER DAY
     Route: 048
     Dates: start: 20050810
  5. LITHIUM CARBONATE [Concomitant]
     Dosage: 600MG PER DAY
     Route: 048
     Dates: start: 20090910
  6. VALPROATE SODIUM [Suspect]
     Dosage: 600MG PER DAY
     Route: 048
     Dates: start: 20100903
  7. ROHYPNOL [Concomitant]
     Dosage: 4MG PER DAY
     Route: 065
     Dates: start: 20100727

REACTIONS (11)
  - ORAL MUCOSA EROSION [None]
  - OCULAR HYPERAEMIA [None]
  - HYPOAESTHESIA [None]
  - LIP EROSION [None]
  - LYMPHOCYTIC INFILTRATION [None]
  - HYPOAESTHESIA ORAL [None]
  - EYE DISCHARGE [None]
  - SCAB [None]
  - LIP SWELLING [None]
  - STEVENS-JOHNSON SYNDROME [None]
  - PYREXIA [None]
